FAERS Safety Report 10004860 (Version 2)
Quarter: 2014Q2

REPORT INFORMATION
  Report Type: Spontaneous
  Country: US (occurrence: US)
  Receive Date: 20140312
  Receipt Date: 20140429
  Transmission Date: 20141212
  Serious: No
  Sender: FDA-Public Use
  Company Number: US-009507513-1403USA003786

PATIENT
  Age: 71 Year
  Sex: Female

DRUGS (3)
  1. MIRALAX [Suspect]
     Indication: CONSTIPATION
     Dosage: UNK, QD
     Route: 048
  2. MIRALAX [Suspect]
     Indication: FISTULA
     Dosage: 17 G, ONCE
     Route: 048
     Dates: start: 201402
  3. CREON (PANCREATIN) [Concomitant]
     Indication: PANCREATITIS CHRONIC
     Dosage: UNK, UNKNOWN

REACTIONS (5)
  - Incorrect drug administration duration [Unknown]
  - Therapeutic response changed [Unknown]
  - Product odour abnormal [Unknown]
  - Product taste abnormal [Unknown]
  - Product solubility abnormal [Unknown]
